FAERS Safety Report 11117745 (Version 1)
Quarter: 2015Q2

REPORT INFORMATION
  Report Type: Spontaneous
  Country: CA (occurrence: CA)
  Receive Date: 20150518
  Receipt Date: 20150518
  Transmission Date: 20150821
  Serious: Yes (Other)
  Sender: FDA-Public Use
  Company Number: CA-PAR PHARMACEUTICAL, INC-2015SCPR013952

PATIENT

DRUGS (3)
  1. ADRENALIN [Suspect]
     Active Substance: EPINEPHRINE
     Indication: CARDIOVASCULAR EVALUATION
     Dosage: 0.05 MCG PER KG PER MINUTE, UNKNOWN
  2. ADRENALIN [Suspect]
     Active Substance: EPINEPHRINE
     Dosage: 0.2 MCG PER KG PER MINUTE, UNKNOWN
  3. ADRENALIN [Suspect]
     Active Substance: EPINEPHRINE
     Dosage: UNK UNK, UNKNOWN

REACTIONS (4)
  - Ventricular extrasystoles [Unknown]
  - Torsade de pointes [Unknown]
  - Electrocardiogram QT prolonged [Unknown]
  - Off label use [Unknown]
